FAERS Safety Report 25435600 (Version 1)
Quarter: 2025Q2

REPORT INFORMATION
  Report Type: Spontaneous
  Country: US (occurrence: US)
  Receive Date: 20250613
  Receipt Date: 20250613
  Transmission Date: 20250717
  Serious: Yes (Other)
  Sender: TEVA
  Company Number: US-TEVA-VS-3340965

PATIENT
  Age: 54 Year
  Sex: Male

DRUGS (2)
  1. CLONAZEPAM [Suspect]
     Active Substance: CLONAZEPAM
     Indication: Product used for unknown indication
     Route: 065
  2. KETAMINE [Suspect]
     Active Substance: KETAMINE
     Indication: Product used for unknown indication
     Route: 065

REACTIONS (4)
  - Sexual abuse [Unknown]
  - Imprisonment [Unknown]
  - Sexual abuse [Unknown]
  - Physical assault [Unknown]

NARRATIVE: CASE EVENT DATE: 20180101
